FAERS Safety Report 6386306-8 (Version None)
Quarter: 2009Q4

REPORT INFORMATION
  Report Type: 
  Country: None (occurrence: None)
  Receive Date: 20091002
  Receipt Date: 20090909
  Transmission Date: 20100525
  Serious: Yes (Death)
  Sender: FDA-Public Use
  Company Number: PH-PFIZER INC-2009250956

PATIENT

DRUGS (3)
  1. CEFOPERAZONE SODIUM, SULBACTAM SODIUM [Suspect]
     Indication: LOWER RESPIRATORY TRACT INFECTION
     Dosage: 1.5 G, SINGLE
     Dates: start: 20060308, end: 20060308
  2. CEFOPERAZONE SODIUM, SULBACTAM SODIUM [Suspect]
     Indication: SEPSIS
  3. ZITHROMAX [Concomitant]
     Dosage: 500 MG, SINGLE
     Dates: start: 20060308, end: 20060308

REACTIONS (3)
  - ARRHYTHMIA [None]
  - PNEUMONIA [None]
  - SEPSIS [None]
